FAERS Safety Report 12088050 (Version 2)
Quarter: 2016Q1

REPORT INFORMATION
  Report Type: Spontaneous
  Country: US (occurrence: US)
  Receive Date: 20160217
  Receipt Date: 20160307
  Transmission Date: 20160526
  Serious: No
  Sender: FDA-Public Use
  Company Number: ALCN2016US001225

PATIENT
  Sex: Female

DRUGS (1)
  1. SYSTANE BALANCE [Suspect]
     Active Substance: PROPYLENE GLYCOL
     Indication: PRODUCT USED FOR UNKNOWN INDICATION
     Dosage: UNK GTT, PRN
     Route: 047
     Dates: start: 20160108

REACTIONS (2)
  - Fatigue [Unknown]
  - Expired product administered [Unknown]

NARRATIVE: CASE EVENT DATE: 201601
